FAERS Safety Report 4269578-5 (Version None)
Quarter: 2004Q1

REPORT INFORMATION
  Report Type: 
  Country: None (occurrence: None)
  Receive Date: 20040112
  Receipt Date: 20040105
  Transmission Date: 20041129
  Serious: Yes (Hospitalization)
  Sender: FDA-Public Use
  Company Number: 2004193263FR

PATIENT
  Age: 41 Year
  Sex: Female

DRUGS (4)
  1. XANAX [Suspect]
     Dosage: UNK, ORAL
     Route: 048
     Dates: end: 20020818
  2. TERCIAN (CYAMEMAZINE) [Suspect]
     Indication: DEPRESSION
     Dosage: 25 MG/DAY, ORAL
     Route: 048
     Dates: end: 20020818
  3. COD EFFERALGAN(CODEINE, PARACETAMOL) [Suspect]
     Dosage: UNK, ORAL
     Route: 048
     Dates: end: 20020818
  4. EFFEXOR [Concomitant]

REACTIONS (5)
  - COMA [None]
  - FALL [None]
  - RENAL FAILURE ACUTE [None]
  - RHABDOMYOLYSIS [None]
  - SOMNOLENCE [None]
